FAERS Safety Report 4733325-0 (Version None)
Quarter: 2005Q3

REPORT INFORMATION
  Report Type: 
  Country: None (occurrence: None)
  Receive Date: 20050801
  Receipt Date: 20050801
  Transmission Date: 20060218
  Serious: No
  Sender: FDA-Public Use
  Company Number: None

PATIENT
  Age: 82 Year
  Sex: Male
  Weight: 89.3586 kg

DRUGS (7)
  1. ZEVALIN [Suspect]
     Indication: LYMPHOMA
     Dosage: 32MCI IV
     Route: 042
     Dates: start: 20050622
  2. RITUAN [Concomitant]
  3. ALLOPURINOL [Concomitant]
  4. PREDNISONE [Concomitant]
  5. ALBUTEROL [Concomitant]
  6. SARIVA [Concomitant]
  7. EQUATE [Concomitant]

REACTIONS (3)
  - INJECTION SITE ERYTHEMA [None]
  - THERMAL BURN [None]
  - WOUND SECRETION [None]
